FAERS Safety Report 4842300-7 (Version None)
Quarter: 2005Q4

REPORT INFORMATION
  Report Type: 
  Country: None (occurrence: None)
  Receive Date: 20051129
  Receipt Date: 20051116
  Transmission Date: 20060501
  Serious: Yes (Other)
  Sender: FDA-Public Use
  Company Number: 2005155966

PATIENT
  Age: 87 Year
  Sex: Male

DRUGS (6)
  1. NEURONTIN [Suspect]
     Indication: HYPOAESTHESIA
     Dosage: 900 MG (300 MG, 3 IN 1 D), ORAL
     Route: 048
     Dates: start: 20051106, end: 20051101
  2. LASIX [Concomitant]
  3. MOTENS                (LACIDIPINE) [Concomitant]
  4. ALLOPURINOL [Concomitant]
  5. THYROHORMONE                     (LEVOTHYROXINE SODIUM) [Concomitant]
  6. SINTROM [Concomitant]

REACTIONS (3)
  - CONSTIPATION [None]
  - RENAL PAIN [None]
  - URINE OUTPUT DECREASED [None]
